FAERS Safety Report 7456963-3 (Version None)
Quarter: 2011Q2

REPORT INFORMATION
  Report Type: 
  Country: None (occurrence: None)
  Receive Date: 20110504
  Receipt Date: 20100728
  Transmission Date: 20111010
  Serious: No
  Sender: FDA-Public Use
  Company Number: US-BAYER-201031909NA

PATIENT
  Sex: Female

DRUGS (1)
  1. YAZ [Suspect]
     Dosage: UNK
     Route: 048
     Dates: end: 20100703

REACTIONS (3)
  - ABDOMINAL DISTENSION [None]
  - MENSTRUATION DELAYED [None]
  - BREAST PAIN [None]
